FAERS Safety Report 9066245 (Version 1)
Quarter: 2013Q1

REPORT INFORMATION
  Report Type: Report from Study
  Country: US (occurrence: US)
  Receive Date: 20130130
  Receipt Date: 20130130
  Transmission Date: 20140127
  Serious: Yes (Hospitalization)
  Sender: FDA-Public Use
  Company Number: US-ABBOTT-12P-163-0977961-00

PATIENT
  Age: 23 None
  Sex: Female

DRUGS (2)
  1. HUMIRA PRE-FILLED SYRINGE [Suspect]
     Indication: CROHN^S DISEASE
     Dates: start: 201111, end: 201208
  2. HUMIRA PRE-FILLED SYRINGE [Suspect]
     Dates: start: 201208, end: 20120831

REACTIONS (4)
  - Abdominal pain [Unknown]
  - Abdominal pain [Unknown]
  - Abdominal pain upper [Unknown]
  - Drug ineffective [Unknown]
